FAERS Safety Report 4961685-4 (Version None)
Quarter: 2006Q2

REPORT INFORMATION
  Report Type: 
  Country: None (occurrence: None)
  Receive Date: 20060404
  Receipt Date: 20060320
  Transmission Date: 20061013
  Serious: Yes (Other)
  Sender: FDA-Public Use
  Company Number: HQ9976121JAN2002

PATIENT
  Sex: Male
  Weight: 33 kg

DRUGS (3)
  1. ENBREL [Suspect]
     Indication: POLYARTHRITIS
     Route: 058
  2. ENBREL [Suspect]
     Route: 058
     Dates: start: 20010101
  3. AZATHIOPRINE [Concomitant]
     Route: 065

REACTIONS (4)
  - CONDITION AGGRAVATED [None]
  - HAEMOGLOBIN DECREASED [None]
  - POLYARTHRITIS [None]
  - UVEITIS [None]
